FAERS Safety Report 8920783 (Version 1)
Quarter: 2012Q4

REPORT INFORMATION
  Report Type: 
  Country: CH (occurrence: CH)
  Receive Date: 20121121
  Receipt Date: 20121121
  Transmission Date: 20130627
  Serious: Yes (Hospitalization)
  Sender: FDA-Public Use
  Company Number: CH-ABBOTT-12P-151-1008840-00

PATIENT
  Age: 53 Year
  Sex: Female

DRUGS (7)
  1. NORVIR [Suspect]
     Indication: HIV INFECTION
     Route: 048
  2. REYATAZ [Suspect]
     Indication: PRODUCT USED FOR UNKNOWN INDICATION
     Route: 048
  3. VIREAD [Concomitant]
     Indication: PRODUCT USED FOR UNKNOWN INDICATION
     Route: 048
     Dates: end: 20120821
  4. 3TC [Concomitant]
     Indication: PRODUCT USED FOR UNKNOWN INDICATION
     Route: 048
     Dates: end: 20120831
  5. KETALGIN NOS [Concomitant]
     Indication: PRODUCT USED FOR UNKNOWN INDICATION
     Route: 048
  6. ZANTIC [Concomitant]
     Indication: PRODUCT USED FOR UNKNOWN INDICATION
     Route: 048
  7. MOTILIUM [Concomitant]
     Indication: PRODUCT USED FOR UNKNOWN INDICATION
     Route: 048

REACTIONS (16)
  - Cholelithiasis [Recovering/Resolving]
  - Supraventricular tachycardia [Recovered/Resolved]
  - Rales [Recovered/Resolved]
  - Ventricular hypokinesia [Recovered/Resolved]
  - Ventricular hypokinesia [Recovered/Resolved]
  - Ejection fraction decreased [Recovered/Resolved]
  - Ischaemic hepatitis [Recovering/Resolving]
  - Stress cardiomyopathy [Recovered/Resolved]
  - Septic shock [Recovered/Resolved]
  - Cholangitis [Unknown]
  - Hydronephrosis [Unknown]
  - Pyrexia [Unknown]
  - Nephrolithiasis [Recovered/Resolved]
  - Dyspnoea [Unknown]
  - Cachexia [Unknown]
  - Palpitations [Recovered/Resolved]
